FAERS Safety Report 8549153-4 (Version None)
Quarter: 2012Q3

REPORT INFORMATION
  Report Type: 
  Country: None (occurrence: None)
  Receive Date: 20120730
  Receipt Date: 20120724
  Transmission Date: 20120928
  Serious: Yes (Death, Other)
  Sender: FDA-Public Use
  Company Number: US-PFIZER INC-2012179929

PATIENT
  Sex: Female

DRUGS (1)
  1. REVATIO [Suspect]
     Indication: PULMONARY ARTERIAL HYPERTENSION
     Dosage: 20 MG, 3X/DAY
     Dates: start: 20100309

REACTIONS (7)
  - TORSADE DE POINTES [None]
  - HYPERGLYCAEMIA [None]
  - BRADYCARDIA [None]
  - PULMONARY HYPERTENSION [None]
  - ARTERIAL STENOSIS [None]
  - METABOLIC ENCEPHALOPATHY [None]
  - URINARY TRACT INFECTION [None]
